FAERS Safety Report 14045011 (Version 7)
Quarter: 2021Q4

REPORT INFORMATION
  Report Type: Spontaneous
  Country: DE (occurrence: DE)
  Receive Date: 20171005
  Receipt Date: 20211004
  Transmission Date: 20220303
  Serious: Yes (Other)
  Sender: FDA-Public Use
  Company Number: DE-MLMSERVICE-20170920-0890619-1

PATIENT
  Age: 77 Year
  Sex: Male

DRUGS (5)
  1. GEMCITABINE [Suspect]
     Active Substance: GEMCITABINE
     Indication: Cutaneous T-cell lymphoma
     Dosage: UNK
     Route: 065
  2. CHLORAMBUCIL [Suspect]
     Active Substance: CHLORAMBUCIL
     Indication: Cutaneous T-cell lymphoma
     Dosage: UNK
     Route: 065
  3. BEXAROTENE [Suspect]
     Active Substance: BEXAROTENE
     Dosage: UNK
     Route: 065
  4. BEXAROTENE [Suspect]
     Active Substance: BEXAROTENE
     Indication: Cutaneous T-cell lymphoma
  5. PREDNISOLONE [Suspect]
     Active Substance: PREDNISOLONE

REACTIONS (1)
  - Drug ineffective [Unknown]
